FAERS Safety Report 8410979-9 (Version None)
Quarter: 2012Q2

REPORT INFORMATION
  Report Type: 
  Country: None (occurrence: None)
  Receive Date: 20120605
  Receipt Date: 20120524
  Transmission Date: 20120825
  Serious: No
  Sender: FDA-Public Use
  Company Number: US-B.I. PHARMACEUTICALS,INC./RIDGEFIELD-2012-BP-11607BP

PATIENT
  Age: 82 Year
  Sex: Male

DRUGS (8)
  1. FUROSEMIDE [Concomitant]
  2. DIGOXIN [Concomitant]
  3. ALLOPURINOL [Concomitant]
  4. QUINOPRIL [Concomitant]
  5. SPIRONOLACTONE [Concomitant]
  6. PRADAXA [Suspect]
     Dosage: 300 MG
     Route: 048
     Dates: start: 20111101
  7. CARVEDILOL [Concomitant]
  8. SYMBASTATIN [Concomitant]

REACTIONS (2)
  - HAEMORRHOIDAL HAEMORRHAGE [None]
  - DIZZINESS [None]
